FAERS Safety Report 19609400 (Version 1)
Quarter: 2021Q3

REPORT INFORMATION
  Report Type: Spontaneous
  Country: US (occurrence: US)
  Receive Date: 20210726
  Receipt Date: 20210726
  Transmission Date: 20211014
  Serious: Yes (Hospitalization)
  Sender: FDA-Public Use
  Company Number: None

PATIENT
  Age: 73 Year
  Sex: Female

DRUGS (22)
  1. CITRACAL [Concomitant]
     Active Substance: CALCIUM CITRATE
  2. MELATONIN [Concomitant]
     Active Substance: MELATONIN
  3. DILTIAZEM. [Concomitant]
     Active Substance: DILTIAZEM
  4. IPRATROPIUM [Concomitant]
     Active Substance: IPRATROPIUM
  5. JARDIANCE [Concomitant]
     Active Substance: EMPAGLIFLOZIN
  6. COENZYME Q10 [Concomitant]
     Active Substance: DIETARY SUPPLEMENT\UBIDECARENONE
  7. FLUTICASONE. [Concomitant]
     Active Substance: FLUTICASONE
  8. METFORMIN [Concomitant]
     Active Substance: METFORMIN HYDROCHLORIDE
  9. PRENATAL [Concomitant]
     Active Substance: VITAMINS
  10. FLUOXETINE [Concomitant]
     Active Substance: FLUOXETINE HYDROCHLORIDE
  11. NIACINAMIDE [Concomitant]
     Active Substance: NIACINAMIDE
  12. DIMETHYL FUMARATE [Suspect]
     Active Substance: DIMETHYL FUMARATE
     Indication: MULTIPLE SCLEROSIS
     Dates: start: 20201019
  13. BIOTIN [Concomitant]
     Active Substance: BIOTIN
  14. ELIQUIS [Concomitant]
     Active Substance: APIXABAN
  15. LUTEIN [Concomitant]
     Active Substance: LUTEIN
  16. OMEPRAZOLE. [Concomitant]
     Active Substance: OMEPRAZOLE
  17. PROAIR HFA [Concomitant]
     Active Substance: ALBUTEROL SULFATE
  18. MIRALAX [Concomitant]
     Active Substance: POLYETHYLENE GLYCOL 3350
  19. PROBIOTIC [Concomitant]
     Active Substance: PROBIOTICS NOS
  20. ESCITALOPRAM [Concomitant]
     Active Substance: ESCITALOPRAM OXALATE
  21. BACLOFEN. [Concomitant]
     Active Substance: BACLOFEN
  22. MONTELUKAST [Concomitant]
     Active Substance: MONTELUKAST SODIUM

REACTIONS (1)
  - Anaemia [None]

NARRATIVE: CASE EVENT DATE: 20210709
